FAERS Safety Report 7634087-X (Version None)
Quarter: 2011Q3

REPORT INFORMATION
  Report Type: 
  Country: None (occurrence: None)
  Receive Date: 20110725
  Receipt Date: 20110714
  Transmission Date: 20111222
  Serious: Yes (Hospitalization)
  Sender: FDA-Public Use
  Company Number: CN-ASTRAZENECA-2011SE37138

PATIENT
  Age: 61 Year
  Sex: Male

DRUGS (4)
  1. HYZAAR [Concomitant]
  2. CRESTOR [Suspect]
     Indication: HYPERLIPIDAEMIA
     Route: 048
  3. ASPIRIN [Concomitant]
  4. AMARYL [Concomitant]

REACTIONS (1)
  - LUNG ABSCESS [None]
